FAERS Safety Report 7648903-9 (Version None)
Quarter: 2011Q3

REPORT INFORMATION
  Report Type: 
  Country: None (occurrence: None)
  Receive Date: 20110801
  Receipt Date: 20110725
  Transmission Date: 20111222
  Serious: Yes (Other)
  Sender: FDA-Public Use
  Company Number: US-MERCK-1107USA03505

PATIENT
  Age: 74 Year
  Sex: Male

DRUGS (1)
  1. ZOCOR [Suspect]
     Route: 048
     Dates: start: 20100101, end: 20100101

REACTIONS (4)
  - AMNESIA [None]
  - APHASIA [None]
  - NEUROLOGICAL SYMPTOM [None]
  - MENTAL IMPAIRMENT [None]
